FAERS Safety Report 7058349-2 (Version None)
Quarter: 2010Q4

REPORT INFORMATION
  Report Type: 
  Country: None (occurrence: None)
  Receive Date: 20101022
  Receipt Date: 20101012
  Transmission Date: 20110411
  Serious: Yes (Other)
  Sender: FDA-Public Use
  Company Number: US-PFIZER INC-2010130460

PATIENT
  Age: 77 Year
  Sex: Female
  Weight: 72.574 kg

DRUGS (5)
  1. NEURONTIN [Suspect]
     Indication: NEURALGIA
     Dosage: 1600 MG, 2X/DAY
     Dates: start: 20100101
  2. FOSAMAX [Concomitant]
     Indication: OSTEOPOROSIS
     Dosage: UNK
  3. WELLBUTRIN XL [Concomitant]
     Dosage: FREQUENCY: DIALY,
  4. DYAZIDE [Concomitant]
     Indication: HYPERTENSION
     Dosage: UNK
  5. METHYLPHENIDATE [Concomitant]
     Dosage: 20 MG, UNK

REACTIONS (1)
  - BLEEDING TIME PROLONGED [None]
